FAERS Safety Report 6928513-9 (Version None)
Quarter: 2010Q3

REPORT INFORMATION
  Report Type: 
  Country: None (occurrence: None)
  Receive Date: 20100817
  Receipt Date: 20100812
  Transmission Date: 20110219
  Serious: Yes (Life-Threatening, Hospitalization, Disabling, Other)
  Sender: FDA-Public Use
  Company Number: DE-CELGENEUS-062-20785-10072151

PATIENT
  Age: 4 Year
  Sex: Female

DRUGS (13)
  1. THALIDOMIDE [Suspect]
     Indication: MENINGITIS TUBERCULOUS
     Dosage: 25-50 MG
     Route: 048
     Dates: start: 20060101, end: 20070701
  2. THALIDOMIDE [Suspect]
  3. PYRAZINAMIDE [Concomitant]
     Indication: MENINGITIS TUBERCULOUS
     Route: 065
     Dates: start: 20060301
  4. PYRAZINAMIDE [Concomitant]
  5. RIFAMPIN [Concomitant]
     Indication: MENINGITIS TUBERCULOUS
     Route: 065
     Dates: start: 20060301
  6. RIFAMPIN [Concomitant]
  7. ISONIAZID [Concomitant]
     Indication: MENINGITIS TUBERCULOUS
     Route: 065
     Dates: start: 20060301
  8. ISONIAZID [Concomitant]
  9. DEXAMETHASONE [Concomitant]
     Indication: MENINGITIS TUBERCULOUS
     Route: 065
     Dates: start: 20060101
  10. DEXAMETHASONE [Concomitant]
  11. PENTOXIFYLLINE [Concomitant]
     Indication: THROMBOSIS PROPHYLAXIS
     Route: 065
  12. CLOPIDOGREL [Concomitant]
     Indication: THROMBOSIS PROPHYLAXIS
     Route: 065
  13. ANTITHROMBOCYTE AGGREGATION MEDICATION [Concomitant]
     Indication: THROMBOSIS PROPHYLAXIS
     Route: 065

REACTIONS (4)
  - ARTERIAL OCCLUSIVE DISEASE [None]
  - ARTERITIS [None]
  - CAROTID ARTERY STENOSIS [None]
  - HEMIPARESIS [None]
